FAERS Safety Report 6973698-1 (Version None)
Quarter: 2010Q3

REPORT INFORMATION
  Report Type: 
  Country: None (occurrence: None)
  Receive Date: 20100907
  Receipt Date: 20100826
  Transmission Date: 20110219
  Serious: Yes (Hospitalization)
  Sender: FDA-Public Use
  Company Number: 2010MA002039

PATIENT
  Age: 10 Year
  Sex: Female
  Weight: 24 kg

DRUGS (7)
  1. TRAMADOL HYDROCHLORIDE [Suspect]
     Indication: ANALGESIC THERAPY
     Dosage: 50 MG; 1X; IV
     Route: 042
  2. ISONIAZID [Suspect]
     Indication: ABSCESS
     Dosage: 150 MG
  3. PYRAZINAMIDE [Concomitant]
  4. RIFAMPICIN [Concomitant]
  5. ETHAMBUTOL HYDROCHLORIDE [Concomitant]
  6. ONDANSETRON [Concomitant]
  7. MIDAZOLAM HCL [Concomitant]

REACTIONS (3)
  - DYSKINESIA [None]
  - EYE ROLLING [None]
  - GRAND MAL CONVULSION [None]
